FAERS Safety Report 19763809 (Version 1)
Quarter: 2021Q3

REPORT INFORMATION
  Report Type: Spontaneous
  Country: NL (occurrence: NL)
  Receive Date: 20210830
  Receipt Date: 20210830
  Transmission Date: 20211014
  Serious: Yes (Death)
  Sender: FDA-Public Use
  Company Number: NL-MYLANLABS-2021M1055736

PATIENT
  Age: 45 Year
  Sex: Male
  Weight: 83.5 kg

DRUGS (8)
  1. OLANZAPINE. [Suspect]
     Active Substance: OLANZAPINE
     Indication: HUNTINGTON^S DISEASE
     Dosage: 1 TABLET 3 TIMES A DAY
     Dates: start: 2017
  2. MOVICOLON [Concomitant]
     Active Substance: POLYETHYLENE GLYCOL 3350\POTASSIUM CHLORIDE\SODIUM BICARBONATE\SODIUM CHLORIDE
     Dosage: POWDER FOR DRINK
  3. CITALOPRAM [Concomitant]
     Active Substance: CITALOPRAM HYDROBROMIDE
     Dosage: COATED TABLET, 20 MG (MILLIGRAM)
  4. D CURA [Concomitant]
     Dosage: BEVERAGE, 100000 IU/ML (UNITS PER MILLILITER)
  5. PARACETAMOL [Concomitant]
     Active Substance: ACETAMINOPHEN
     Dosage: 500MG 2DD1 TABLET
  6. OXAZEPAM. [Concomitant]
     Active Substance: OXAZEPAM
     Dosage: TABLET, 10MG, 09H 1 TABLET; 20H 2 TABLETS, ZN 1 EXTRA TABLET
  7. CISORDINOL                         /00876702/ [Concomitant]
     Active Substance: ZUCLOPENTHIXOL
     Dosage: 10MG TABLET 3X DAILY 1 TABLET
  8. NORTRILEN [Concomitant]
     Active Substance: NORTRIPTYLINE
     Dosage: 25MG 1DD1

REACTIONS (1)
  - Embolism [Fatal]

NARRATIVE: CASE EVENT DATE: 20210304
